FAERS Safety Report 7938675-2 (Version None)
Quarter: 2011Q4

REPORT INFORMATION
  Report Type: 
  Country: None (occurrence: None)
  Receive Date: 20111123
  Receipt Date: 20111115
  Transmission Date: 20120403
  Serious: Yes (Other)
  Sender: FDA-Public Use
  Company Number: CA-ROCHE-1015228

PATIENT
  Sex: Male

DRUGS (2)
  1. XOLAIR [Suspect]
     Dates: start: 20111115
  2. XOLAIR [Suspect]
     Indication: ASTHMA
     Dates: start: 20100929

REACTIONS (3)
  - INJECTION SITE DISCOMFORT [None]
  - HEART RATE INCREASED [None]
  - HYPERTENSION [None]
